FAERS Safety Report 5328413-4 (Version None)
Quarter: 2007Q2

REPORT INFORMATION
  Report Type: 
  Country: None (occurrence: None)
  Receive Date: 20070518
  Receipt Date: 20070509
  Transmission Date: 20071010
  Serious: Yes (Other)
  Sender: FDA-Public Use
  Company Number: US-JNJFOC-20070503255

PATIENT
  Sex: Female
  Weight: 78.02 kg

DRUGS (3)
  1. REMICADE [Suspect]
     Indication: RHEUMATOID ARTHRITIS
     Route: 042
  2. APTONEL [Concomitant]
  3. HYDROXYCELOROQUIN [Concomitant]

REACTIONS (2)
  - BALANCE DISORDER [None]
  - DRUG INEFFECTIVE [None]
